FAERS Safety Report 9914913 (Version 1)
Quarter: 2014Q1

REPORT INFORMATION
  Report Type: Spontaneous
  Country: US (occurrence: US)
  Receive Date: 20140220
  Receipt Date: 20140220
  Transmission Date: 20141002
  Serious: No
  Sender: FDA-Public Use
  Company Number: US-PFIZER INC-2014046290

PATIENT
  Age: 36 Year
  Sex: Male
  Weight: 84.81 kg

DRUGS (9)
  1. LYRICA [Suspect]
     Indication: PAIN
     Dosage: 300 MG, TWICE A DAY AS NEEDED
     Route: 048
  2. METHADONE [Suspect]
     Indication: PAIN
     Dosage: 5 MG, 1-2 TABLET THREE TIMES A DAY AS NEEDED
     Route: 048
  3. METHADONE [Suspect]
     Dosage: 5 MG, AS NEEDED
     Route: 048
  4. METHADONE [Suspect]
     Dosage: 3 DF, DAILY
     Route: 048
  5. VITAMIN B12 [Concomitant]
     Dosage: 1 ML, WEEKLY (1000MCG/ML SOLUTION)
     Route: 058
  6. BACLOFEN [Concomitant]
     Indication: MUSCLE SPASMS
     Dosage: 10 MG, 1-2 TABLET THREE TIMES IN A DAY, AS NEEDED
     Route: 048
  7. BACLOFEN [Concomitant]
     Indication: MUSCLE SPASMS
  8. TESTOSTERONE CIPIONATE [Concomitant]
     Dosage: 1 ML, WEEKLY
     Route: 030
  9. NORCO [Concomitant]
     Indication: PAIN
     Dosage: 10-325 MG (1/2- 1 TABLET) EVERY 6 TO 8 HOURS AS NEEDED
     Route: 048

REACTIONS (11)
  - Withdrawal syndrome [Unknown]
  - Constipation [Unknown]
  - Dyspepsia [Unknown]
  - Anxiety [Unknown]
  - Fatigue [Unknown]
  - Testicular pain [Unknown]
  - Bladder pain [Unknown]
  - Diarrhoea [Unknown]
  - Abdominal pain [Unknown]
  - Gait disturbance [Unknown]
  - Musculoskeletal discomfort [Unknown]
